FAERS Safety Report 9822232 (Version 1)
Quarter: 2014Q1

REPORT INFORMATION
  Report Type: Spontaneous
  Country: IN (occurrence: None)
  Receive Date: 20140115
  Receipt Date: 20140115
  Transmission Date: 20141002
  Serious: Yes (Life-Threatening, Other)
  Sender: FDA-Public Use
  Company Number: FK201400078

PATIENT
  Age: 38 Year
  Sex: Female

DRUGS (2)
  1. ONDANSETRON [Suspect]
     Indication: PROPHYLAXIS OF NAUSEA AND VOMITING
     Dosage: 4 MG, SLOWLY OVER 30 SECS, INTRAVENOUS, ( NOT OTHERWISE SPECIFED)
     Route: 042
  2. RANITIDINE [Suspect]
     Indication: PROPHYLAXIS OF NAUSEA AND VOMITING
     Dosage: 50 MG, INTRAMUSCULAR
     Route: 030

REACTIONS (4)
  - Drug interaction [None]
  - Cardiac arrest [None]
  - Unresponsive to stimuli [None]
  - Apnoea [None]
